FAERS Safety Report 8611858-4 (Version None)
Quarter: 2012Q3

REPORT INFORMATION
  Report Type: 
  Country: None (occurrence: None)
  Receive Date: 20120822
  Receipt Date: 20120816
  Transmission Date: 20120928
  Serious: Yes (Life-Threatening)
  Sender: FDA-Public Use
  Company Number: AU-ROCHE-1104902

PATIENT
  Age: 81 Year
  Sex: Male

DRUGS (1)
  1. RITUXAN [Suspect]
     Indication: PRODUCT USED FOR UNKNOWN INDICATION
     Route: 042
     Dates: start: 20120428, end: 20120428

REACTIONS (5)
  - NEUTROPENIA [None]
  - FALL [None]
  - LEUKOPENIA [None]
  - VISION BLURRED [None]
  - THROMBOCYTOPENIA [None]
